FAERS Safety Report 19991332 (Version 1)
Quarter: 2021Q4

REPORT INFORMATION
  Report Type: Spontaneous
  Country: AU (occurrence: AU)
  Receive Date: 20211025
  Receipt Date: 20211025
  Transmission Date: 20220303
  Serious: Yes (Hospitalization, Other)
  Sender: FDA-Public Use
  Company Number: AU-LUPIN PHARMACEUTICALS INC.-2021-20367

PATIENT
  Age: 64 Year
  Sex: Male

DRUGS (3)
  1. QUININE [Suspect]
     Active Substance: QUININE
     Indication: Muscle spasms
     Dosage: UNK, AT LEAST 3 G
     Route: 048
  2. RISPERIDONE [Concomitant]
     Active Substance: RISPERIDONE
     Indication: Schizophrenia
     Dosage: UNK
     Route: 065
  3. ACETAMINOPHEN [Concomitant]
     Active Substance: ACETAMINOPHEN
     Indication: Product used for unknown indication
     Dosage: UNK
     Route: 065

REACTIONS (4)
  - Toxicity to various agents [Not Recovered/Not Resolved]
  - Blindness [Not Recovered/Not Resolved]
  - Overdose [Unknown]
  - Off label use [Unknown]
